FAERS Safety Report 6299618-3 (Version None)
Quarter: 2009Q3

REPORT INFORMATION
  Report Type: 
  Country: None (occurrence: None)
  Receive Date: 20090806
  Receipt Date: 20090728
  Transmission Date: 20100115
  Serious: No
  Sender: FDA-Public Use
  Company Number: US-ELI_LILLY_AND_COMPANY-US200907001823

PATIENT
  Age: 15 Year
  Sex: Male

DRUGS (7)
  1. HUMALOG [Suspect]
     Dosage: UNK, UNK
     Dates: start: 20060101
  2. HUMULIN R [Suspect]
     Dosage: UNK, UNK
  3. HUMULIN N [Suspect]
     Dosage: UNK, UNK
  4. LANTUS [Concomitant]
  5. LISINOPRIL [Concomitant]
     Dosage: 40 MG, DAILY (1/D)
  6. OMEGA-3 FATTY ACIDS [Concomitant]
  7. VITAMIN B COMPLEX CAP [Concomitant]

REACTIONS (8)
  - BLOOD GLUCOSE DECREASED [None]
  - BLOOD GLUCOSE INCREASED [None]
  - DRUG EFFECT DECREASED [None]
  - HIGH DENSITY LIPOPROTEIN DECREASED [None]
  - HYPERTENSION [None]
  - HYPOGLYCAEMIA [None]
  - LIPIDS INCREASED [None]
  - WEIGHT INCREASED [None]
